FAERS Safety Report 8485218-3 (Version None)
Quarter: 2012Q2

REPORT INFORMATION
  Report Type: 
  Country: None (occurrence: None)
  Receive Date: 20120627
  Receipt Date: 20120627
  Transmission Date: 20120825
  Serious: Yes (Other)
  Sender: FDA-Public Use
  Company Number: None

PATIENT
  Sex: Male

DRUGS (8)
  1. CYCLOBENZAPRINE [Concomitant]
  2. TERAZOSIN HCL [Concomitant]
  3. METHOTREXATE [Concomitant]
  4. SULFAMETHOXAZOLE AND TRIMETHOPRIM [Concomitant]
  5. NEOMYCIN/POLY/HC 1% [Concomitant]
  6. CEPHALEXIN [Concomitant]
  7. FORTEO [Suspect]
     Indication: OSTEOPOROSIS
     Dosage: FORTEO 20MCG ONCE DAILY SQ INJECTIONS
     Route: 058
     Dates: start: 20101231, end: 20120626
  8. NAPROXEN [Concomitant]

REACTIONS (3)
  - DIZZINESS [None]
  - VERTIGO [None]
  - LOSS OF CONSCIOUSNESS [None]
